FAERS Safety Report 7505455-1 (Version None)
Quarter: 2011Q2

REPORT INFORMATION
  Report Type: 
  Country: None (occurrence: None)
  Receive Date: 20110526
  Receipt Date: 20110523
  Transmission Date: 20111010
  Serious: Yes (Death, Other)
  Sender: FDA-Public Use
  Company Number: PHHY2011BR44220

PATIENT
  Sex: Male
  Weight: 82 kg

DRUGS (3)
  1. EXELON [Suspect]
     Indication: DEMENTIA ALZHEIMER'S TYPE
     Dosage: 18MG/10CM^2
     Route: 062
  2. ANTIHYPERTENSIVES [Concomitant]
     Dosage: UNK
  3. EXELON [Suspect]
     Dosage: 9MG/5CM^2
     Route: 062

REACTIONS (1)
  - CEREBROVASCULAR ACCIDENT [None]
